FAERS Safety Report 13176778 (Version 3)
Quarter: 2017Q3

REPORT INFORMATION
  Report Type: Report from Study
  Country: None (occurrence: CA)
  Receive Date: 20170201
  Receipt Date: 20170806
  Transmission Date: 20171127
  Serious: Yes (Hospitalization, Other)
  Sender: FDA-Public Use
  Company Number: CA-ABBVIE-16K-028-1762588-00

PATIENT
  Sex: Male

DRUGS (2)
  1. HUMIRA [Suspect]
     Active Substance: ADALIMUMAB
     Route: 058
     Dates: start: 2017
  2. HUMIRA [Suspect]
     Active Substance: ADALIMUMAB
     Indication: CROHN^S DISEASE
     Route: 058
     Dates: start: 20160812, end: 2017

REACTIONS (6)
  - Drug ineffective [Not Recovered/Not Resolved]
  - Enteritis [Recovered/Resolved]
  - Small intestinal stenosis [Recovered/Resolved]
  - Vomiting [Not Recovered/Not Resolved]
  - Obstruction gastric [Recovered/Resolved]
  - Gastrointestinal pain [Recovering/Resolving]

NARRATIVE: CASE EVENT DATE: 2016
